FAERS Safety Report 9444562 (Version 3)
Quarter: 2014Q2

REPORT INFORMATION
  Report Type: Spontaneous
  Country: US (occurrence: US)
  Receive Date: 20130807
  Receipt Date: 20140605
  Transmission Date: 20141212
  Serious: No
  Sender: FDA-Public Use
  Company Number: US-PFIZER INC-2013226854

PATIENT
  Age: 60 Year
  Sex: Female

DRUGS (17)
  1. XELJANZ [Suspect]
     Indication: RHEUMATOID ARTHRITIS
     Dosage: 5 MG, 2X/DAY
     Route: 048
     Dates: start: 201305, end: 20130515
  2. XELJANZ [Suspect]
     Dosage: 5 MG, 2X/DAY
     Route: 048
     Dates: start: 20130524
  3. CYMBALTA [Concomitant]
     Dosage: 60 MG
  4. AMBIEN [Concomitant]
     Dosage: 10 MG
  5. LASIX [Concomitant]
     Dosage: 40 MG
  6. PREDNISONE [Concomitant]
     Dosage: 10 MG
  7. PROMETHAZINE [Concomitant]
     Dosage: 25 MG
  8. LOSARTAN POTASSIUM [Concomitant]
     Dosage: 25 MG
  9. ISOSORBIDE MN [Concomitant]
     Dosage: 60 MG
  10. DIAZEPAM [Concomitant]
     Dosage: 5 MG
  11. SEROQUEL XR [Concomitant]
     Dosage: 150 MG
  12. DILTIAZEM [Concomitant]
     Dosage: 240 MG
  13. ACETAMINOPHEN W/OXYCODONE [Concomitant]
     Dosage: 7.5-325
  14. FLEXERIL [Concomitant]
     Dosage: 10 MG
  15. PLAVIX [Concomitant]
     Dosage: 75 MG
  16. COLACE [Concomitant]
     Dosage: 100 MG
  17. REGLAN [Concomitant]
     Dosage: 10 MG

REACTIONS (3)
  - Cystitis [Not Recovered/Not Resolved]
  - Local swelling [Unknown]
  - Back disorder [Unknown]
